FAERS Safety Report 16833506 (Version 2)
Quarter: 2021Q4

REPORT INFORMATION
  Report Type: Spontaneous
  Country: US (occurrence: US)
  Receive Date: 20190920
  Receipt Date: 20211126
  Transmission Date: 20220303
  Serious: No
  Sender: FDA-Public Use
  Company Number: US-VERTEX PHARMACEUTICALS-2019-008760

PATIENT
  Sex: Female

DRUGS (1)
  1. ORKAMBI [Suspect]
     Active Substance: IVACAFTOR\LUMACAFTOR
     Indication: Cystic fibrosis
     Dosage: 150 MG OF LUMACAFTOR/188 MG OF IVACAFTOR
     Route: 048
     Dates: start: 20190212, end: 20190305

REACTIONS (3)
  - Abnormal behaviour [Recovering/Resolving]
  - Anxiety [Recovering/Resolving]
  - Sleep terror [Recovering/Resolving]
